FAERS Safety Report 19883335 (Version 1)
Quarter: 2021Q3

REPORT INFORMATION
  Report Type: Spontaneous
  Country: US (occurrence: US)
  Receive Date: 20210926
  Receipt Date: 20210926
  Transmission Date: 20211014
  Serious: No
  Sender: FDA-Public Use
  Company Number: US-ORGANON-O2109USA001435

PATIENT
  Sex: Female

DRUGS (6)
  1. PROPECIA [Suspect]
     Active Substance: FINASTERIDE
     Dosage: 2MG, ONE TABLET ONCE DAILY
     Route: 048
     Dates: start: 202101, end: 2021
  2. METOPROLOL. [Concomitant]
     Active Substance: METOPROLOL
     Dosage: 1 TABLET BY MOUTH ONCE DAILY
     Route: 048
  3. NP THYROID [Concomitant]
     Active Substance: LEVOTHYROXINE\LIOTHYRONINE
     Dosage: 1 TABLET BY MOTH ONCE DAILY
     Route: 048
     Dates: start: 2020, end: 202105
  4. LEVOTHYROXINE. [Concomitant]
     Active Substance: LEVOTHYROXINE
     Indication: HYPOTHYROIDISM
     Dosage: 1 TABLET BY MOUTH ONCE DAILY
     Route: 048
     Dates: start: 2020, end: 202105
  5. PROPECIA [Suspect]
     Active Substance: FINASTERIDE
     Indication: ALOPECIA
     Dosage: 1 MG,1 TABLET ONCE DAILY
     Route: 048
     Dates: start: 202010, end: 202101
  6. PROPECIA [Suspect]
     Active Substance: FINASTERIDE
     Dosage: 5 MILLIGRAM, ONE TABLET ONCE DAILY
     Route: 048
     Dates: start: 2021

REACTIONS (1)
  - Drug ineffective [Unknown]

NARRATIVE: CASE EVENT DATE: 2020
